FAERS Safety Report 16897380 (Version 1)
Quarter: 2019Q4

REPORT INFORMATION
  Report Type: Spontaneous
  Country: DE (occurrence: DE)
  Receive Date: 20191009
  Receipt Date: 20191009
  Transmission Date: 20200122
  Serious: Yes (Death, Other)
  Sender: FDA-Public Use
  Company Number: DE-GILEAD-2019-0432048

PATIENT
  Age: 44 Year
  Sex: Male
  Weight: 90 kg

DRUGS (13)
  1. DELIX [RAMIPRIL] [Concomitant]
     Active Substance: RAMIPRIL
     Dosage: DAILY DOSE: 10 MG MILLGRAM(S) EVERY DAYS 2 SEPARATED DOSES
  2. ARIPIPRAZOL [Concomitant]
     Active Substance: ARIPIPRAZOLE
     Dosage: DAILY DOSE: 10 MG MILLGRAM(S) EVERY 2 DAYS
  3. LERCANIDIPINA [LERCANIDIPINE HYDROCHLORIDE] [Concomitant]
     Active Substance: LERCANIDIPINE HYDROCHLORIDE
     Dosage: DAILY DOSE: 20 MG MILLGRAM(S) EVERY DAYS 2 SEPARATED DOSES
  4. SOLIAN [Concomitant]
     Active Substance: AMISULPRIDE
     Dosage: DAILY DOSE: 8 ML MILLILITRE(S) EVERY DAYS 2 SEPARATED DOSES
  5. MAGNESIOCARD [Concomitant]
     Active Substance: MAGNESIUM ASPARTATE HYDROCHLORIDE
     Dosage: DAILY DOSE: 7.5 MMOL MILLIMOLE(S) EVERY DAYS 3 SEPARATED DOSES
  6. JARDIANCE [Concomitant]
     Active Substance: EMPAGLIFLOZIN
     Dosage: DAILY DOSE: 25 MG MILLGRAM(S) EVERY DAYS
  7. HUMALOG [Concomitant]
     Active Substance: INSULIN LISPRO
  8. SUBUTEX [Concomitant]
     Active Substance: BUPRENORPHINE HYDROCHLORIDE
     Dosage: 1-0-0-0
     Route: 060
  9. METOPROLOL. [Concomitant]
     Active Substance: METOPROLOL
     Dosage: DAILY DOSE: 50 MG MILLGRAM(S) EVERY DAYS
  10. ZIPRASIDON [Concomitant]
     Active Substance: ZIPRASIDONE HYDROCHLORIDE
     Dosage: 2-1-0-0
  11. QUETIAPIN [Concomitant]
     Active Substance: QUETIAPINE
     Dosage: DAILY DOSE: 100 MG MILLGRAM(S) EVERY DAYS
  12. EPCLUSA [Suspect]
     Active Substance: SOFOSBUVIR\VELPATASVIR
     Indication: HEPATITIS C
     Dosage: 1 DOSAGE FORM, QD
     Route: 048
     Dates: start: 20190812
  13. METFORMIN [Concomitant]
     Active Substance: METFORMIN HYDROCHLORIDE
     Dosage: DAILY DOSE: 2000 MG MILLGRAM(S) EVERY DAYS 2 SEPARATED DOSES

REACTIONS (1)
  - Death [Fatal]

NARRATIVE: CASE EVENT DATE: 20190821
